FAERS Safety Report 16884184 (Version 2)
Quarter: 2019Q4

REPORT INFORMATION
  Report Type: Spontaneous
  Country: VN (occurrence: VN)
  Receive Date: 20191004
  Receipt Date: 20191017
  Transmission Date: 20200122
  Serious: Yes (Death, Life-Threatening, Hospitalization)
  Sender: FDA-Public Use
  Company Number: VN-ROCHE-2423197

PATIENT
  Age: 58 Year
  Sex: Female

DRUGS (2)
  1. ADRENALINE [EPINEPHRINE] [Suspect]
     Active Substance: EPINEPHRINE
     Indication: ANAPHYLACTIC REACTION
     Route: 065
  2. ACTILYSE [Suspect]
     Active Substance: ALTEPLASE
     Indication: ISCHAEMIC STROKE
     Dosage: (1 IN 1 ONCE)
     Route: 065
     Dates: start: 20190922, end: 20190922

REACTIONS (4)
  - Pulmonary oedema [Unknown]
  - Anaphylactic reaction [Unknown]
  - Lip swelling [Not Recovered/Not Resolved]
  - Condition aggravated [Fatal]

NARRATIVE: CASE EVENT DATE: 20190922
